FAERS Safety Report 9784781 (Version 1)
Quarter: 2013Q4

REPORT INFORMATION
  Report Type: Spontaneous
  Country: US (occurrence: US)
  Receive Date: 20131227
  Receipt Date: 20131227
  Transmission Date: 20140711
  Serious: No
  Sender: FDA-Public Use
  Company Number: US-B.I. PHARMACEUTICALS,INC./RIDGEFIELD-2013-BI-41598BP

PATIENT
  Sex: Female

DRUGS (21)
  1. SPIRIVA [Suspect]
     Indication: CHRONIC OBSTRUCTIVE PULMONARY DISEASE
     Dosage: 18 MCG
     Route: 055
     Dates: start: 2013, end: 2013
  2. SPIRIVA [Suspect]
     Indication: ASTHMA
  3. SPIRIVA [Suspect]
     Indication: BRONCHITIS
  4. PROAIR [Concomitant]
     Indication: CHRONIC OBSTRUCTIVE PULMONARY DISEASE
     Route: 055
  5. PROAIR [Concomitant]
     Indication: ASTHMA
  6. PROAIR [Concomitant]
     Indication: BRONCHITIS
  7. VERAPAMIL [Concomitant]
     Indication: HYPERTENSION
     Dosage: 80 MG
     Route: 048
  8. ASPIRIN [Concomitant]
     Indication: CEREBROVASCULAR ACCIDENT PROPHYLAXIS
     Dosage: 81 MG
     Route: 048
  9. TRIAMTERENE / HYDROCHLOROTHIAZIDE [Concomitant]
     Indication: HYPERTENSION
     Dosage: STRENGTH: 75 MG / 50 MG; DAILY DOSE: 37.5  MG /25 MG
     Route: 048
  10. ISOSORBIDE [Concomitant]
     Route: 048
  11. GEMFIBROZIL [Concomitant]
     Indication: BLOOD CHOLESTEROL INCREASED
     Dosage: 600 MG
     Route: 048
  12. OMEPRAZOLE [Concomitant]
     Indication: GASTROOESOPHAGEAL REFLUX DISEASE
     Dosage: 20 MG
     Route: 048
  13. CITALOPRAM [Concomitant]
     Dosage: 20 MG
     Route: 048
  14. POTASSIUM [Concomitant]
     Dosage: 20 MG
     Route: 048
  15. LISINOPRIL [Concomitant]
     Indication: HYPERTENSION
     Route: 048
  16. LETROZOLE [Concomitant]
     Indication: BREAST CANCER
     Dosage: 2.5 MG
     Route: 048
  17. LIVALO [Concomitant]
     Indication: BLOOD TRIGLYCERIDES INCREASED
     Dosage: 2 MG
     Route: 048
  18. ACETAMINOPHEN\HYDROCODONE [Concomitant]
     Indication: MUSCULOSKELETAL PAIN
     Route: 048
  19. ACETAMINOPHEN\HYDROCODONE [Concomitant]
     Indication: BACK PAIN
  20. ACETAMINOPHEN\HYDROCODONE [Concomitant]
     Indication: ARTHRITIS
  21. ACETAMINOPHEN\HYDROCODONE [Concomitant]
     Indication: ARTHRITIS

REACTIONS (6)
  - Increased upper airway secretion [Recovered/Resolved]
  - Dyspnoea [Recovered/Resolved]
  - Nasopharyngitis [Recovered/Resolved]
  - Choking [Recovered/Resolved]
  - Urinary tract infection [Recovered/Resolved]
  - Throat irritation [Recovered/Resolved]
